FAERS Safety Report 8084380-4 (Version None)
Quarter: 2012Q1

REPORT INFORMATION
  Report Type: 
  Country: None (occurrence: None)
  Receive Date: 20120128
  Receipt Date: 20110203
  Transmission Date: 20120608
  Serious: No
  Sender: FDA-Public Use
  Company Number: US-ABBOTT-11P-163-0703631-00

PATIENT
  Sex: Male
  Weight: 93.978 kg

DRUGS (3)
  1. DOXYCYCLINE [Concomitant]
     Indication: LYME DISEASE
  2. HUMIRA [Suspect]
     Indication: CROHN'S DISEASE
     Dates: start: 20101101
  3. PREDNISONE TAB [Concomitant]
     Indication: CROHN'S DISEASE

REACTIONS (3)
  - BURNING SENSATION [None]
  - CROHN'S DISEASE [None]
  - FATIGUE [None]
